FAERS Safety Report 4735146-1 (Version None)
Quarter: 2005Q3

REPORT INFORMATION
  Report Type: 
  Country: None (occurrence: None)
  Receive Date: 20050804
  Receipt Date: 20050715
  Transmission Date: 20060218
  Serious: Yes (Hospitalization, Other)
  Sender: FDA-Public Use
  Company Number: USA0507102905

PATIENT
  Age: 68 Year
  Sex: Male
  Weight: 98 kg

DRUGS (7)
  1. HUMALOG [Suspect]
     Indication: DIABETES MELLITUS
  2. HUMULIN R [Suspect]
     Indication: DIABETES MELLITUS
  3. HUMULIN N [Suspect]
     Indication: DIABETES MELLITUS
     Dates: end: 20050401
  4. LANTUS [Concomitant]
  5. XANAX [Concomitant]
  6. HYDROCODONE W/APAP [Concomitant]
  7. COUMADIN [Concomitant]

REACTIONS (8)
  - ANKLE FRACTURE [None]
  - DECREASED APPETITE [None]
  - FAILURE OF IMPLANT [None]
  - FALL [None]
  - PHARMACEUTICAL PRODUCT COMPLAINT [None]
  - STAPHYLOCOCCAL INFECTION [None]
  - WEIGHT DECREASED [None]
  - WEIGHT INCREASED [None]
